FAERS Safety Report 23531204 (Version 1)
Quarter: 2024Q1

REPORT INFORMATION
  Report Type: Spontaneous
  Country: GB (occurrence: GB)
  Receive Date: 20240216
  Receipt Date: 20240216
  Transmission Date: 20240409
  Serious: Yes (Hospitalization, Other)
  Sender: FDA-Public Use
  Company Number: None

PATIENT
  Age: 90 Year

DRUGS (10)
  1. LANSOPRAZOLE [Suspect]
     Active Substance: LANSOPRAZOLE
     Indication: Product used for unknown indication
     Dosage: UNK, QD
     Route: 065
  2. FENBID [Concomitant]
     Dosage: TID; APPLY UP TO THREE TIMES A DAY
     Route: 065
  3. Spikevax bivalent Original / Omicron [Concomitant]
     Dosage: UNK
     Route: 030
  4. POTASSIUM BICARBONATE\SODIUM ALGINATE [Concomitant]
     Active Substance: POTASSIUM BICARBONATE\SODIUM ALGINATE
     Dosage: 10 MILLILITER, TID, TWO 5 ML SPOONSFUL
     Route: 065
  5. COCODAMOL [Concomitant]
     Active Substance: ACETAMINOPHEN\CODEINE PHOSPHATE
     Dosage: ONE OR TWO TO BE TAKEN FOUR TIMESDAILY AS REQUIRED - TAKES PRN
     Route: 065
  6. FLUCONAZOLE [Concomitant]
     Active Substance: FLUCONAZOLE
     Dosage: ONE TO BE TAKEN AS A SINGLE DOSE
     Route: 065
  7. LACTULOSE [Concomitant]
     Active Substance: LACTULOSE
     Indication: Constipation
     Dosage: BID; TWO TO THREE 5 ML SPOONFULS TO BE TAKENTWICE A DAY, WHEN REQUIRED FOR CONSTIPATION - RARELY USE
     Route: 065
  8. CLOTRIMAZOLE [Concomitant]
     Active Substance: CLOTRIMAZOLE
     Dosage: 1 DOSAGE FORM TID
     Route: 065
  9. BISOPROLOL [Concomitant]
     Active Substance: BISOPROLOL\BISOPROLOL FUMARATE
     Dosage: 2.5 MILLIGRAM, QD
     Route: 065
  10. APIXABAN [Concomitant]
     Active Substance: APIXABAN
     Dosage: 2.5 MILLIGRAM, BID
     Route: 065

REACTIONS (1)
  - Femur fracture [Recovering/Resolving]
